FAERS Safety Report 6226140-2 (Version None)
Quarter: 2009Q2

REPORT INFORMATION
  Report Type: 
  Country: None (occurrence: None)
  Receive Date: 20090610
  Receipt Date: 20090526
  Transmission Date: 20091009
  Serious: Yes (Hospitalization)
  Sender: FDA-Public Use
  Company Number: 2009001582

PATIENT
  Age: 59 Year
  Sex: Female

DRUGS (3)
  1. ERLOTINIB (ERLOTINIB) (TABLET) (ERLOTINIB) [Suspect]
     Indication: LUNG SQUAMOUS CELL CARCINOMA STAGE UNSPECIFIED
     Dosage: 150 MG, QD, ORAL
     Route: 048
     Dates: start: 20090109, end: 20090109
  2. LIPITOR [Concomitant]
  3. CRESTOR [Concomitant]

REACTIONS (12)
  - ALANINE AMINOTRANSFERASE INCREASED [None]
  - ASPARTATE AMINOTRANSFERASE INCREASED [None]
  - BLOOD ALKALINE PHOSPHATASE INCREASED [None]
  - DERMATITIS ACNEIFORM [None]
  - HEPAPLASTIN DECREASED [None]
  - MALIGNANT NEOPLASM PROGRESSION [None]
  - METASTASES TO LYMPH NODES [None]
  - METASTASES TO PLEURA [None]
  - NON-SMALL CELL LUNG CANCER [None]
  - PLATELET COUNT DECREASED [None]
  - PROTHROMBIN TIME PROLONGED [None]
  - XERODERMA [None]
